FAERS Safety Report 9103230 (Version 2)
Quarter: 2013Q1

REPORT INFORMATION
  Report Type: Report from Study
  Country: IT (occurrence: IT)
  Receive Date: 20130219
  Receipt Date: 20130321
  Transmission Date: 20140127
  Serious: Yes (Death)
  Sender: FDA-Public Use
  Company Number: IT-AMGEN-ITACT2013011281

PATIENT
  Age: 78 Year
  Sex: Female

DRUGS (15)
  1. DENOSUMAB [Suspect]
     Indication: METASTASES TO BONE
     Dosage: UNK
     Dates: start: 20121206, end: 20130103
  2. DENOSUMAB [Suspect]
     Indication: TRANSITIONAL CELL CARCINOMA
  3. PHYSIOLOGICAL SALINE SOLUTION [Concomitant]
     Dosage: UNK
     Route: 042
     Dates: start: 20130207
  4. SOLDESAM [Concomitant]
     Dosage: 8 MG, UNK
     Route: 042
     Dates: start: 20130207
  5. RANIDIL [Concomitant]
     Dosage: UNK
     Route: 042
     Dates: start: 20130207
  6. PLASIL [Concomitant]
     Dosage: UNK
     Dates: start: 20130207
  7. RYTMONORM [Concomitant]
     Dosage: 425 MG, BID
     Dates: start: 20130207
  8. BLOPRESID [Concomitant]
     Dosage: 32 MG, UNK
     Dates: start: 20130207
  9. LYRICA [Concomitant]
     Dosage: 75 MG, BID
     Dates: start: 20130207
  10. OXYCONTIN [Concomitant]
     Dosage: 5 MG, TID
     Dates: start: 20130207
  11. TAVOR [Concomitant]
     Dosage: 1 MG, UNK
     Dates: start: 20130207
  12. DIBASE [Concomitant]
     Dosage: 25 GTT, QWK
     Dates: start: 20130207
  13. CALCIUM SANDOZ [Concomitant]
     Dosage: UNK
     Dates: start: 20130207
  14. CARDIRENE [Concomitant]
     Dosage: UNK
     Dates: start: 20130207
  15. LEVOXACIN [Concomitant]
     Dosage: 500 MG, UNK
     Dates: start: 20130207

REACTIONS (1)
  - Death [Fatal]
